FAERS Safety Report 5369391-1 (Version None)
Quarter: 2007Q2

REPORT INFORMATION
  Report Type: 
  Country: None (occurrence: None)
  Receive Date: 20070620
  Receipt Date: 20070615
  Transmission Date: 20071010
  Serious: Yes (Death)
  Sender: FDA-Public Use
  Company Number: S07-CAN-02626-01

PATIENT
  Age: 67 Year
  Sex: Female

DRUGS (5)
  1. TIAZAC [Suspect]
  2. METOPROLOL SUCCINATE [Suspect]
  3. WARFARIN SODIUM [Concomitant]
  4. COZAAR [Concomitant]
  5. CLODRONATE [Concomitant]

REACTIONS (4)
  - CARDIOGENIC SHOCK [None]
  - DIZZINESS [None]
  - HEART RATE DECREASED [None]
  - NAUSEA [None]
